FAERS Safety Report 9305776 (Version 1)
Quarter: 2013Q2

REPORT INFORMATION
  Report Type: Spontaneous
  Country: US (occurrence: US)
  Receive Date: 20130523
  Receipt Date: 20130523
  Transmission Date: 20140414
  Serious: Yes (Other)
  Sender: FDA-Public Use
  Company Number: US-JNJFOC-20130509449

PATIENT
  Sex: Female

DRUGS (5)
  1. XARELTO [Suspect]
     Indication: THROMBOSIS PROPHYLAXIS
     Dosage: FOR 12 DAYS
     Route: 048
     Dates: start: 2013, end: 2013
  2. XARELTO [Suspect]
     Indication: THROMBOSIS PROPHYLAXIS
     Route: 048
     Dates: start: 2013
  3. XARELTO [Suspect]
     Indication: HIP ARTHROPLASTY
     Route: 048
     Dates: start: 2013
  4. XARELTO [Suspect]
     Indication: HIP ARTHROPLASTY
     Dosage: FOR 12 DAYS
     Route: 048
     Dates: start: 2013, end: 2013
  5. ASPIRIN [Suspect]
     Indication: HIP ARTHROPLASTY
     Route: 065

REACTIONS (2)
  - Pulmonary embolism [Unknown]
  - Incorrect dose administered [Recovered/Resolved]
